FAERS Safety Report 16811522 (Version 2)
Quarter: 2019Q3

REPORT INFORMATION
  Report Type: Spontaneous
  Country: US (occurrence: US)
  Receive Date: 20190916
  Receipt Date: 20190918
  Transmission Date: 20191005
  Serious: No
  Sender: FDA-Public Use
  Company Number: US-SA-2019SA255165

PATIENT
  Age: 41 Year
  Sex: Female

DRUGS (1)
  1. TOUJEO [Suspect]
     Active Substance: INSULIN GLARGINE
     Indication: TYPE 1 DIABETES MELLITUS
     Dosage: 14 U, QD
     Route: 065
     Dates: start: 201903

REACTIONS (3)
  - Product contamination with body fluid [Unknown]
  - Product dose omission [Unknown]
  - Device operational issue [Unknown]
